FAERS Safety Report 10175825 (Version 2)
Quarter: 2014Q2

REPORT INFORMATION
  Report Type: Report from Study
  Country: PL (occurrence: PL)
  Receive Date: 20140516
  Receipt Date: 20140516
  Transmission Date: 20141212
  Serious: Yes (Hospitalization)
  Sender: FDA-Public Use
  Company Number: PL-CELGENEUS-129-10004-12080868

PATIENT
  Age: 39 Year
  Sex: Female
  Weight: 59 kg

DRUGS (6)
  1. CC-10004 [Suspect]
     Indication: PSORIATIC ARTHROPATHY
     Dosage: 60 MILLIGRAM
     Route: 048
     Dates: start: 20120420, end: 20120804
  2. METYPRED [Concomitant]
     Indication: PSORIATIC ARTHROPATHY
     Dosage: 4 MILLIGRAM
     Route: 048
     Dates: start: 20111212
  3. YASMINELLE [Concomitant]
     Indication: CONTRACEPTION
     Dosage: 1 TABLET
     Route: 048
     Dates: start: 2010
  4. CYCLO 3 FORT [Concomitant]
     Indication: VARICOSE VEIN
     Dosage: 2 TABLET
     Route: 048
     Dates: start: 2010
  5. AZOPT [Concomitant]
     Indication: GLAUCOMA
     Dosage: 2 DROPS
     Route: 047
     Dates: start: 201107
  6. XALANTAN [Concomitant]
     Indication: GLAUCOMA
     Dosage: BOTH EYES
     Route: 047
     Dates: start: 201107

REACTIONS (1)
  - Pyelonephritis acute [Recovered/Resolved]
